FAERS Safety Report 8239702-8 (Version None)
Quarter: 2012Q1

REPORT INFORMATION
  Report Type: 
  Country: None (occurrence: None)
  Receive Date: 20120309
  Receipt Date: 20100503
  Transmission Date: 20120608
  Serious: Yes (Other)
  Sender: FDA-Public Use
  Company Number: PHHY2010US28806

PATIENT
  Age: 30 Year
  Sex: Female
  Weight: 57 kg

DRUGS (7)
  1. PROVIGIL [Concomitant]
  2. EXTAVIA [Suspect]
     Indication: MULTIPLE SCLEROSIS
     Dosage: 0.25 MG, SUBCUTANEOUS ; 0.5 MG, SUBCUTANEOUS ; 0.75 MG, SUBCUTANEOUS ; 0.3 MG, SUBCUTANEOUS
     Route: 058
     Dates: start: 20100201
  3. EXTAVIA [Suspect]
     Indication: MULTIPLE SCLEROSIS
     Dosage: 0.25 MG, SUBCUTANEOUS ; 0.5 MG, SUBCUTANEOUS ; 0.75 MG, SUBCUTANEOUS ; 0.3 MG, SUBCUTANEOUS
     Route: 058
     Dates: start: 20100104
  4. EXTAVIA [Suspect]
     Indication: MULTIPLE SCLEROSIS
     Dosage: 0.25 MG, SUBCUTANEOUS ; 0.5 MG, SUBCUTANEOUS ; 0.75 MG, SUBCUTANEOUS ; 0.3 MG, SUBCUTANEOUS
     Route: 058
     Dates: start: 20010118
  5. EXTAVIA [Suspect]
     Indication: MULTIPLE SCLEROSIS
     Dosage: 0.25 MG, SUBCUTANEOUS ; 0.5 MG, SUBCUTANEOUS ; 0.75 MG, SUBCUTANEOUS ; 0.3 MG, SUBCUTANEOUS
     Route: 058
     Dates: start: 20100215, end: 20100225
  6. CYCLOBENZAPRINE [Concomitant]
  7. XANAX [Concomitant]

REACTIONS (1)
  - SUICIDAL IDEATION [None]
